FAERS Safety Report 19070956 (Version 1)
Quarter: 2021Q1

REPORT INFORMATION
  Report Type: Other
  Country: CA (occurrence: CA)
  Receive Date: 20210330
  Receipt Date: 20210330
  Transmission Date: 20210420
  Serious: Yes (Hospitalization)
  Sender: FDA-Public Use
  Company Number: CA-CELLTRION INC.-2021CA003993

PATIENT

DRUGS (12)
  1. LYRICA [Concomitant]
     Active Substance: PREGABALIN
  2. VITAMIN C [Concomitant]
     Active Substance: ASCORBIC ACID
  3. BACLOFEN. [Concomitant]
     Active Substance: BACLOFEN
  4. MODAFINIL. [Concomitant]
     Active Substance: MODAFINIL
  5. RITUXIMAB (UNKNOWN) [Suspect]
     Active Substance: RITUXIMAB
     Indication: MULTIPLE SCLEROSIS
     Dosage: 1000.0 MG,1 EVERY 2 WEEKS
     Route: 042
  6. ACETAMINOPHEN. [Concomitant]
     Active Substance: ACETAMINOPHEN
     Indication: PREMEDICATION
  7. CALCIUM [Concomitant]
     Active Substance: CALCIUM
  8. CRANBERRY [VACCINIUM SPP.] [Concomitant]
     Active Substance: CRANBERRY
  9. METHYLPREDNISOLONE. [Concomitant]
     Active Substance: METHYLPREDNISOLONE
     Indication: PREMEDICATION
  10. VORTIOXETINE. [Concomitant]
     Active Substance: VORTIOXETINE
  11. DIPHENHYDRAMINE. [Concomitant]
     Active Substance: DIPHENHYDRAMINE
     Indication: PREMEDICATION
  12. ERGOCALCIFEROL. [Concomitant]
     Active Substance: ERGOCALCIFEROL

REACTIONS (2)
  - Localised infection [Recovered/Resolved]
  - Off label use [Unknown]
